FAERS Safety Report 16335475 (Version 2)
Quarter: 2019Q3

REPORT INFORMATION
  Report Type: Spontaneous
  Country: US (occurrence: US)
  Receive Date: 20190521
  Receipt Date: 20190704
  Transmission Date: 20191004
  Serious: No
  Sender: FDA-Public Use
  Company Number: US-BIOGEN-2019BI00713146

PATIENT
  Sex: Male
  Weight: 79.45 kg

DRUGS (4)
  1. AVONEX [Suspect]
     Active Substance: INTERFERON BETA-1A
     Indication: MULTIPLE SCLEROSIS
     Route: 030
     Dates: start: 20181105
  2. INVEGA TRINZA [Concomitant]
     Active Substance: PALIPERIDONE PALMITATE
     Route: 065
  3. TOVIAZ [Concomitant]
     Active Substance: FESOTERODINE FUMARATE
     Route: 065
  4. COPPER [Concomitant]
     Active Substance: COPPER
     Route: 065

REACTIONS (2)
  - Sluggishness [Unknown]
  - Gait disturbance [Unknown]
